FAERS Safety Report 18557537 (Version 1)
Quarter: 2020Q4

REPORT INFORMATION
  Report Type: Report from Study
  Country: DE (occurrence: DE)
  Receive Date: 20201130
  Receipt Date: 20201130
  Transmission Date: 20210114
  Serious: Yes (Other)
  Sender: FDA-Public Use
  Company Number: DE-ROCHE-2171730

PATIENT
  Age: 75 Year
  Sex: Male
  Weight: 112 kg

DRUGS (2)
  1. COBIMETINIB. [Suspect]
     Active Substance: COBIMETINIB
     Indication: MALIGNANT MELANOMA
     Dosage: DATE OF LAST DOSE PRIOR TO ONSET OF FIRST EPISODE OF RETINOPATHY ON 15/AUG/2018?DATE OF LAST DOSE PR
     Route: 048
     Dates: start: 20180803
  2. VEMURAFENIB. [Suspect]
     Active Substance: VEMURAFENIB
     Indication: MALIGNANT MELANOMA
     Dosage: DATE OF LAST DOSE PRIOR TO ONSET OF FIRST EPISODE OF RETINOPATHY ON 15/AUG/2018 ?DATE OF LAST DOSE P
     Route: 048
     Dates: start: 20180803

REACTIONS (2)
  - Retinopathy [Not Recovered/Not Resolved]
  - Squamous cell carcinoma [Recovered/Resolved]

NARRATIVE: CASE EVENT DATE: 20180815
